FAERS Safety Report 17516439 (Version 1)
Quarter: 2020Q1

REPORT INFORMATION
  Report Type: Spontaneous
  Country: US (occurrence: US)
  Receive Date: 20200306
  Receipt Date: 20200306
  Transmission Date: 20200409
  Serious: No
  Sender: FDA-Public Use
  Company Number: None

PATIENT
  Age: 29 Year
  Sex: Female
  Weight: 65.25 kg

DRUGS (10)
  1. ADDEROLL [Concomitant]
  2. SPIRINOLACTONE [Concomitant]
     Active Substance: SPIRONOLACTONE
  3. ZYRTEC [Concomitant]
     Active Substance: CETIRIZINE HYDROCHLORIDE
  4. ALBUTEROL INHALER [Concomitant]
     Active Substance: ALBUTEROL
  5. GABAPENTIN. [Concomitant]
     Active Substance: GABAPENTIN
  6. BLISOVI [Concomitant]
     Active Substance: ETHINYL ESTRADIOL\NORETHINDRONE ACETATE
  7. COPAXONE [Suspect]
     Active Substance: GLATIRAMER ACETATE
     Indication: MULTIPLE SCLEROSIS
     Dosage: ?          OTHER FREQUENCY:THREE TIMES A WEEK;OTHER ROUTE:INJECTION?
  8. NIACINAMIDE [Concomitant]
     Active Substance: NIACINAMIDE
  9. COPAXONE [Concomitant]
     Active Substance: GLATIRAMER ACETATE
  10. OXYCARBAZAPINE [Concomitant]

REACTIONS (3)
  - Scab [None]
  - Alopecia [None]
  - Hair texture abnormal [None]

NARRATIVE: CASE EVENT DATE: 20190501
